FAERS Safety Report 4449445-4 (Version None)
Quarter: 2004Q3

REPORT INFORMATION
  Report Type: 
  Country: None (occurrence: None)
  Receive Date: 20040914
  Receipt Date: 20040831
  Transmission Date: 20050211
  Serious: Yes (Other)
  Sender: FDA-Public Use
  Company Number: TEST00304003042

PATIENT
  Age: 50 Year
  Sex: Male

DRUGS (2)
  1. ANDROGEL [Suspect]
     Indication: HYPOGONADISM
     Dosage: 2.5 G DAILY, TD, 5 G DAILY TD
     Route: 062
     Dates: start: 20040701, end: 20040801
  2. ANDROGEL [Suspect]
     Indication: HYPOGONADISM
     Dosage: 2.5 G DAILY, TD, 5 G DAILY TD
     Route: 062
     Dates: start: 20040801

REACTIONS (3)
  - BLOOD TESTOSTERONE DECREASED [None]
  - HAEMATOCRIT DECREASED [None]
  - PHLEBITIS SUPERFICIAL [None]
